FAERS Safety Report 8264664-7 (Version None)
Quarter: 2012Q2

REPORT INFORMATION
  Report Type: 
  Country: None (occurrence: None)
  Receive Date: 20120403
  Receipt Date: 20120319
  Transmission Date: 20120825
  Serious: Yes (Hospitalization)
  Sender: FDA-Public Use
  Company Number: 2012ST000215

PATIENT
  Age: 72 Year
  Sex: Male

DRUGS (3)
  1. MATULANE [Suspect]
     Indication: PRODUCT USED FOR UNKNOWN INDICATION
     Dosage: 150 MG;QOD;PO, 200 MG;QOD;PO
     Route: 048
     Dates: start: 20120125
  2. MATULANE [Suspect]
     Indication: PRODUCT USED FOR UNKNOWN INDICATION
     Dosage: 150 MG;QOD;PO, 200 MG;QOD;PO
     Route: 048
     Dates: start: 20120125
  3. VINCRISTINE [Suspect]
     Indication: PRODUCT USED FOR UNKNOWN INDICATION

REACTIONS (2)
  - HYPOMAGNESAEMIA [None]
  - HYPONATRAEMIA [None]
